APPROVED DRUG PRODUCT: CLINDAMYCIN PHOSPHATE IN DEXTROSE 5% IN PLASTIC CONTAINER
Active Ingredient: CLINDAMYCIN PHOSPHATE
Strength: EQ 18MG BASE/ML
Dosage Form/Route: INJECTABLE;INJECTION
Application: A065027 | Product #003
Applicant: ABBOTT LABORATORIES
Approved: Jun 29, 2001 | RLD: No | RS: No | Type: DISCN